FAERS Safety Report 25974507 (Version 1)
Quarter: 2025Q4

REPORT INFORMATION
  Report Type: Spontaneous
  Country: EU (occurrence: EU)
  Receive Date: 20251029
  Receipt Date: 20251029
  Transmission Date: 20260117
  Serious: Yes (Death, Other)
  Sender: AUROBINDO
  Company Number: EU-AFSSAPS-PA2025000979

PATIENT
  Age: 44 Year
  Sex: Female

DRUGS (3)
  1. TIROFIBAN [Suspect]
     Active Substance: TIROFIBAN
     Indication: Aneurysm
     Dosage: 1 DOSAGE FORM
     Route: 051
     Dates: start: 20251006
  2. ASPIRIN [Suspect]
     Active Substance: ASPIRIN
     Indication: Aneurysm
     Dosage: 250 MILLIGRAM
     Route: 042
     Dates: start: 20251006
  3. HEPARIN [Suspect]
     Active Substance: HEPARIN SODIUM
     Indication: Aneurysm
     Dosage: 4000 INTERNATIONAL UNIT
     Route: 042
     Dates: start: 20251006

REACTIONS (1)
  - Shock haemorrhagic [Fatal]

NARRATIVE: CASE EVENT DATE: 20251006
